FAERS Safety Report 15223490 (Version 1)
Quarter: 2018Q3

REPORT INFORMATION
  Report Type: Other
  Country: US (occurrence: US)
  Receive Date: 20180731
  Receipt Date: 20180731
  Transmission Date: 20181010
  Serious: Yes (Life-Threatening, Hospitalization, Other)
  Sender: FDA-Public Use
  Company Number: US-C B FLEET CO INC-201807-US-001557

PATIENT
  Age: 51 Year
  Sex: Female

DRUGS (1)
  1. BC (ASPIRIN\CAFFEINE) [Suspect]
     Active Substance: ASPIRIN\CAFFEINE
     Indication: MIGRAINE
     Dosage: AT LEAST 4 PER DAY
     Route: 048

REACTIONS (6)
  - Asthenia [Recovering/Resolving]
  - Respiratory failure [Recovered/Resolved]
  - Incorrect drug administration duration [None]
  - Dyspnoea [Recovering/Resolving]
  - Cough [Recovering/Resolving]
  - Overdose [None]
